FAERS Safety Report 8865982 (Version 1)
Quarter: 2012Q4

REPORT INFORMATION
  Report Type: Report from Study
  Country: US (occurrence: US)
  Receive Date: 20121025
  Receipt Date: 20121025
  Transmission Date: 20130627
  Serious: No
  Sender: FDA-Public Use
  Company Number: US-ABBOTT-12P-163-0946688-00

PATIENT
  Sex: Female
  Weight: 49.94 kg

DRUGS (4)
  1. LUPRON DEPOT 3.75 MG [Suspect]
     Indication: ENDOMETRIOSIS
     Route: 030
     Dates: start: 201205
  2. METHAMAZOLE [Concomitant]
     Indication: BASEDOW^S DISEASE
  3. METRANAZOLE [Concomitant]
     Indication: ROSACEA
  4. TRAMADOL [Concomitant]
     Indication: ENDOMETRIOSIS

REACTIONS (9)
  - Restless legs syndrome [Not Recovered/Not Resolved]
  - Insomnia [Not Recovered/Not Resolved]
  - Myalgia [Not Recovered/Not Resolved]
  - Hot flush [Not Recovered/Not Resolved]
  - Chills [Not Recovered/Not Resolved]
  - Memory impairment [Not Recovered/Not Resolved]
  - Asthenia [Not Recovered/Not Resolved]
  - Crying [Recovered/Resolved]
  - Abdominal pain [Recovered/Resolved]
